FAERS Safety Report 13001340 (Version 2)
Quarter: 2017Q1

REPORT INFORMATION
  Report Type: Spontaneous
  Country: US (occurrence: US)
  Receive Date: 20161206
  Receipt Date: 20170201
  Transmission Date: 20170428
  Serious: No
  Sender: FDA-Public Use
  Company Number: US-PFIZER INC-2016565287

PATIENT
  Age: 68 Year
  Sex: Male

DRUGS (1)
  1. SOMAVERT [Suspect]
     Active Substance: PEGVISOMANT
     Indication: ACROMEGALY
     Dosage: 30 MG, 1X/DAY
     Dates: start: 201611

REACTIONS (2)
  - Blood glucose decreased [Recovered/Resolved]
  - Incorrect dosage administered [Recovered/Resolved]

NARRATIVE: CASE EVENT DATE: 201611
